FAERS Safety Report 10408930 (Version 1)
Quarter: 2014Q3

REPORT INFORMATION
  Report Type: Spontaneous
  Country: US (occurrence: US)
  Receive Date: 20140826
  Receipt Date: 20140826
  Transmission Date: 20150326
  Serious: No
  Sender: FDA-Public Use
  Company Number: US-SHIRE-US201405203

PATIENT
  Age: 19 Year
  Sex: Male
  Weight: 49.89 kg

DRUGS (1)
  1. VYVANSE [Suspect]
     Active Substance: LISDEXAMFETAMINE DIMESYLATE
     Indication: ATTENTION DEFICIT/HYPERACTIVITY DISORDER
     Dosage: 30 MG, 1X/DAY:QD(3-4 TIMES PER WEEK)
     Route: 048
     Dates: start: 20140228

REACTIONS (5)
  - Insomnia [Unknown]
  - Abdominal pain upper [Unknown]
  - Inappropriate schedule of drug administration [Unknown]
  - Weight decreased [Unknown]
  - Anxiety [Unknown]

NARRATIVE: CASE EVENT DATE: 2014
